FAERS Safety Report 8187105-7 (Version None)
Quarter: 2012Q1

REPORT INFORMATION
  Report Type: 
  Country: None (occurrence: None)
  Receive Date: 20120306
  Receipt Date: 20120227
  Transmission Date: 20120608
  Serious: Yes (Hospitalization)
  Sender: FDA-Public Use
  Company Number: BE-TEVA-324949ISR

PATIENT
  Age: 62 Year
  Sex: Female

DRUGS (6)
  1. INSULIN ASPART [Concomitant]
     Indication: TYPE 2 DIABETES MELLITUS
     Route: 058
  2. INSULIN GLARGINE [Concomitant]
     Indication: TYPE 2 DIABETES MELLITUS
     Route: 058
  3. OLMESARTAN MEDOXOMIL [Suspect]
     Dosage: 40 MILLIGRAM;
     Route: 065
  4. AMLODIPINE [Concomitant]
     Dosage: 10 MILLIGRAM;
     Route: 065
  5. METFORMIN HCL [Suspect]
     Indication: TYPE 2 DIABETES MELLITUS
     Dosage: 2550 MILLIGRAM;
     Route: 065
  6. ATORVASTATIN [Concomitant]
     Dosage: 20 MILLIGRAM;
     Route: 065

REACTIONS (3)
  - RENAL FAILURE ACUTE [None]
  - LACTIC ACIDOSIS [None]
  - ABDOMINAL PAIN [None]
